FAERS Safety Report 6287662-1 (Version None)
Quarter: 2009Q3

REPORT INFORMATION
  Report Type: 
  Country: None (occurrence: None)
  Receive Date: 20090727
  Receipt Date: 20090727
  Transmission Date: 20100115
  Serious: Yes (Hospitalization)
  Sender: FDA-Public Use
  Company Number: None

PATIENT
  Age: 78 Year
  Sex: Male
  Weight: 71 kg

DRUGS (1)
  1. METHOTREXATE [Suspect]
     Dosage: MG, PO
     Route: 048
     Dates: start: 19960301, end: 20090706

REACTIONS (3)
  - DIZZINESS [None]
  - ORAL DISORDER [None]
  - PANCYTOPENIA [None]
